FAERS Safety Report 12714793 (Version 1)
Quarter: 2016Q3

REPORT INFORMATION
  Report Type: Report from Study
  Country: US (occurrence: US)
  Receive Date: 20160905
  Receipt Date: 20160905
  Transmission Date: 20161109
  Serious: Yes (Other)
  Sender: FDA-Public Use
  Company Number: US-JNJFOC-20160213800

PATIENT
  Age: 74 Year
  Sex: Male
  Weight: 104 kg

DRUGS (13)
  1. IMBRUVICA [Suspect]
     Active Substance: IBRUTINIB
     Indication: CHRONIC LYMPHOCYTIC LEUKAEMIA
     Route: 048
     Dates: start: 20151215
  2. VITAMIN D [Concomitant]
     Active Substance: CHOLECALCIFEROL
  3. VITAMIN C [Concomitant]
     Active Substance: ASCORBIC ACID
  4. METOPROLOL. [Concomitant]
     Active Substance: METOPROLOL
  5. POTASSIUM [Concomitant]
     Active Substance: POTASSIUM
  6. ZINC [Concomitant]
     Active Substance: ZINC\ZINC CHLORIDE
  7. THYROXINE [Concomitant]
     Active Substance: LEVOTHYROXINE
  8. TAMSULOSIN [Concomitant]
     Active Substance: TAMSULOSIN
  9. FLOMAX [Concomitant]
     Active Substance: TAMSULOSIN HYDROCHLORIDE
  10. LOSARTAN. [Concomitant]
     Active Substance: LOSARTAN
  11. ALLOPURINOL. [Concomitant]
     Active Substance: ALLOPURINOL
  12. IRON [Concomitant]
     Active Substance: IRON
  13. HYDROCHLOROTHIAZIDE. [Concomitant]
     Active Substance: HYDROCHLOROTHIAZIDE

REACTIONS (8)
  - Contusion [Not Recovered/Not Resolved]
  - Increased tendency to bruise [Unknown]
  - Lip dry [Recovering/Resolving]
  - Dry mouth [Recovering/Resolving]
  - Fatigue [Recovering/Resolving]
  - Decreased appetite [Recovering/Resolving]
  - Systolic hypertension [Unknown]
  - White blood cell count increased [Recovering/Resolving]

NARRATIVE: CASE EVENT DATE: 20160204
